FAERS Safety Report 7398438-6 (Version None)
Quarter: 2011Q2

REPORT INFORMATION
  Report Type: 
  Country: None (occurrence: None)
  Receive Date: 20110407
  Receipt Date: 20110328
  Transmission Date: 20111010
  Serious: Yes (Other)
  Sender: FDA-Public Use
  Company Number: US-BIOGENIDEC-2011BI005383

PATIENT
  Age: 33 Year
  Sex: Female

DRUGS (4)
  1. MACROBID ANTIBIOTIC [Concomitant]
     Indication: CYSTITIS
  2. PRENATAL VITAMINS [Concomitant]
  3. TYSABRI [Suspect]
     Indication: MULTIPLE SCLEROSIS
     Route: 042
     Dates: start: 20090820, end: 20101209
  4. LABETALOL HCL [Concomitant]

REACTIONS (2)
  - PREGNANCY [None]
  - ABORTION SPONTANEOUS [None]
